FAERS Safety Report 21546182 (Version 3)
Quarter: 2023Q2

REPORT INFORMATION
  Report Type: Spontaneous
  Country: US (occurrence: US)
  Receive Date: 20221103
  Receipt Date: 20230612
  Transmission Date: 20230722
  Serious: No
  Sender: FDA-Public Use
  Company Number: US-BIOGEN-2022BI01166484

PATIENT
  Sex: Male

DRUGS (2)
  1. TYSABRI [Suspect]
     Active Substance: NATALIZUMAB
     Indication: Multiple sclerosis
     Route: 050
     Dates: start: 20130321, end: 20220920
  2. VARICELLA-ZOSTER VACCINE NOS [Suspect]
     Active Substance: VARICELLA-ZOSTER VACCINE
     Indication: Herpes zoster
     Route: 050

REACTIONS (5)
  - Visual impairment [Unknown]
  - Memory impairment [Unknown]
  - Cognitive disorder [Unknown]
  - Immunisation reaction [Unknown]
  - Fall [Recovered/Resolved]
